FAERS Safety Report 19488644 (Version 1)
Quarter: 2021Q3

REPORT INFORMATION
  Report Type: Spontaneous
  Country: ES (occurrence: ES)
  Receive Date: 20210702
  Receipt Date: 20210702
  Transmission Date: 20211014
  Serious: Yes (Death)
  Sender: FDA-Public Use
  Company Number: ES-ABBVIE-21K-144-3971275-00

PATIENT
  Age: 54 Year
  Sex: Male

DRUGS (11)
  1. SIROLIMUS. [Concomitant]
     Active Substance: SIROLIMUS
     Indication: PROPHYLAXIS AGAINST GRAFT VERSUS HOST DISEASE
  2. FLUDARABINE [Concomitant]
     Active Substance: FLUDARABINE PHOSPHATE
     Indication: BLASTIC PLASMACYTOID DENDRITIC CELL NEOPLASIA
  3. VENETOCLAX. [Suspect]
     Active Substance: VENETOCLAX
     Indication: BLASTIC PLASMACYTOID DENDRITIC CELL NEOPLASIA
     Dosage: GRADUALLY INCREASED
     Route: 048
     Dates: start: 201807, end: 2018
  4. BUSULFAN. [Concomitant]
     Active Substance: BUSULFAN
     Indication: BLASTIC PLASMACYTOID DENDRITIC CELL NEOPLASIA
  5. DEXAMETHASONE. [Concomitant]
     Active Substance: DEXAMETHASONE
     Indication: PRODUCT USED FOR UNKNOWN INDICATION
  6. METHOTREXATE. [Concomitant]
     Active Substance: METHOTREXATE
     Indication: BLASTIC PLASMACYTOID DENDRITIC CELL NEOPLASIA
     Dosage: THRICE
     Dates: start: 201807
  7. HYDROCORTISONE. [Concomitant]
     Active Substance: HYDROCORTISONE
     Indication: BLASTIC PLASMACYTOID DENDRITIC CELL NEOPLASIA
     Dosage: THRICE
     Dates: start: 201807
  8. TACROLIMUS. [Concomitant]
     Active Substance: TACROLIMUS
     Indication: PROPHYLAXIS AGAINST GRAFT VERSUS HOST DISEASE
  9. VENETOCLAX. [Suspect]
     Active Substance: VENETOCLAX
     Route: 048
     Dates: start: 2018, end: 201810
  10. ARA?C [Concomitant]
     Active Substance: CYTARABINE
     Indication: BLASTIC PLASMACYTOID DENDRITIC CELL NEOPLASIA
     Dosage: 3 G/M2 DAYS 1, 3 AND 5
     Dates: start: 201612
  11. ARA?C [Concomitant]
     Active Substance: CYTARABINE
     Dosage: THRICE
     Dates: start: 201807

REACTIONS (2)
  - Off label use [Unknown]
  - Blastic plasmacytoid dendritic cell neoplasia [Fatal]
